FAERS Safety Report 4866154-8 (Version None)
Quarter: 2005Q4

REPORT INFORMATION
  Report Type: 
  Country: None (occurrence: None)
  Receive Date: 20051227
  Receipt Date: 20051215
  Transmission Date: 20060501
  Serious: Yes (Hospitalization, Other)
  Sender: FDA-Public Use
  Company Number: US-AMGEN-US161576

PATIENT
  Sex: Male
  Weight: 101.7 kg

DRUGS (15)
  1. ARANESP [Suspect]
     Indication: RENAL TRANSPLANT
     Route: 058
     Dates: start: 20050623, end: 20051014
  2. AMIODARONE [Concomitant]
     Dates: start: 20050601
  3. NEXIUM [Concomitant]
     Dates: start: 20051121
  4. SURFAK [Concomitant]
     Route: 048
     Dates: start: 20051121
  5. CELEXA [Concomitant]
     Route: 048
     Dates: start: 20051102
  6. ALLOPURINOL [Concomitant]
     Route: 048
     Dates: start: 20051102
  7. LASIX [Concomitant]
     Route: 048
     Dates: start: 20051014
  8. HYTRIN [Concomitant]
     Route: 048
     Dates: start: 20030903
  9. TUSSIONEX [Concomitant]
     Dates: start: 20021202
  10. ASCORBIC ACID [Concomitant]
     Route: 048
     Dates: start: 20030903
  11. ROCALTROL [Concomitant]
     Route: 048
     Dates: start: 20020702
  12. PREDNISONE 50MG TAB [Concomitant]
     Route: 048
     Dates: start: 20020702
  13. LIPITOR [Concomitant]
     Route: 048
     Dates: start: 20020702
  14. DARVOCET-N 100 [Concomitant]
     Dates: start: 20020702
  15. GENGRAF [Concomitant]

REACTIONS (16)
  - APLASIA PURE RED CELL [None]
  - ATRIAL FIBRILLATION [None]
  - ATRIAL FLUTTER [None]
  - BONE MARROW FAILURE [None]
  - CELLULITIS [None]
  - COOMBS NEGATIVE HAEMOLYTIC ANAEMIA [None]
  - HAEMOPTYSIS [None]
  - KLEBSIELLA INFECTION [None]
  - LYMPHOCYTIC LEUKAEMIA [None]
  - MENTAL STATUS CHANGES [None]
  - MYOCARDIAL INFARCTION [None]
  - PNEUMONIA [None]
  - RENAL FAILURE ACUTE [None]
  - SPUTUM CULTURE POSITIVE [None]
  - STAPHYLOCOCCAL INFECTION [None]
  - T-CELL LYMPHOMA [None]
